FAERS Safety Report 18041018 (Version 1)
Quarter: 2020Q3

REPORT INFORMATION
  Report Type: Report from Study
  Country: CA (occurrence: CA)
  Receive Date: 20200717
  Receipt Date: 20200717
  Transmission Date: 20201103
  Serious: Yes (Other)
  Sender: FDA-Public Use
  Company Number: CA-ACCORD-190454

PATIENT
  Age: 40 Year
  Sex: Female

DRUGS (6)
  1. IBUPROFEN. [Concomitant]
     Active Substance: IBUPROFEN
     Route: 065
  2. COSENTYX [Suspect]
     Active Substance: SECUKINUMAB
     Indication: ANKYLOSING SPONDYLITIS
     Dosage: 1 EVERY 1?WEEKS
     Route: 058
  3. ESOMEPRAZOLE. [Concomitant]
     Active Substance: ESOMEPRAZOLE MAGNESIUM
     Route: 065
  4. VOLTAREN EMULGEL [Concomitant]
     Active Substance: DICLOFENAC DIETHYLAMINE
     Route: 061
  5. METHOTREXATE. [Suspect]
     Active Substance: METHOTREXATE
     Indication: PRODUCT USED FOR UNKNOWN INDICATION
     Route: 065
  6. NAPROXEN. [Concomitant]
     Active Substance: NAPROXEN
     Dosage: 2 EVERY 1 DAYS
     Route: 065

REACTIONS (14)
  - Diarrhoea [Unknown]
  - Migraine [Unknown]
  - Psoriasis [Unknown]
  - Cough [Unknown]
  - Abdominal discomfort [Not Recovered/Not Resolved]
  - Hypoaesthesia [Unknown]
  - Malaise [Unknown]
  - Oropharyngeal pain [Unknown]
  - Nasopharyngitis [Unknown]
  - Pyrexia [Unknown]
  - Crohn^s disease [Unknown]
  - Rhinorrhoea [Unknown]
  - Eating disorder [Unknown]
  - Sinusitis [Unknown]
